FAERS Safety Report 10903216 (Version 2)
Quarter: 2015Q2

REPORT INFORMATION
  Report Type: Spontaneous
  Country: DE (occurrence: DE)
  Receive Date: 20150311
  Receipt Date: 20150602
  Transmission Date: 20150821
  Serious: Yes (Other)
  Sender: FDA-Public Use
  Company Number: DE-UCBSA-2015006772

PATIENT
  Age: 78 Year
  Sex: Male
  Weight: 74 kg

DRUGS (14)
  1. VIMPAT [Suspect]
     Active Substance: LACOSAMIDE
     Indication: OFF LABEL USE
  2. MERONEM [Concomitant]
     Active Substance: MEROPENEM
     Indication: PNEUMONIA
     Dosage: 1 MG, 2X/DAY (BID)
     Route: 042
     Dates: start: 20141229, end: 20150107
  3. LEVETIRACETAM. [Suspect]
     Active Substance: LEVETIRACETAM
     Indication: SEIZURE
     Dosage: UNK
     Dates: start: 20141218, end: 201412
  4. CIPROFLOXACIN. [Concomitant]
     Active Substance: CIPROFLOXACIN
     Indication: PNEUMONIA
     Dosage: UNK
     Dates: start: 20141226, end: 20141228
  5. PHENYTOIN. [Concomitant]
     Active Substance: PHENYTOIN
     Indication: PRODUCT USED FOR UNKNOWN INDICATION
     Dosage: UNK
  6. VALPROIC ACID. [Concomitant]
     Active Substance: VALPROIC ACID
     Dosage: INCREASED DOSE
     Route: 042
     Dates: start: 20141222, end: 20141224
  7. VIMPAT [Suspect]
     Active Substance: LACOSAMIDE
     Indication: STATUS EPILEPTICUS
     Dosage: 200 MG, 2X/DAY (BID)
     Route: 042
     Dates: start: 20141222, end: 20150103
  8. LEVETIRACETAM. [Suspect]
     Active Substance: LEVETIRACETAM
     Dosage: UNK
     Dates: start: 20150103
  9. LORAZEPAM. [Concomitant]
     Active Substance: LORAZEPAM
     Indication: SEIZURE
     Dosage: UNK
     Dates: start: 20141218
  10. ATROPINE [Concomitant]
     Active Substance: ATROPINE
     Indication: BRADYCARDIA
     Dosage: UNK
  11. PIPERACILLIN/TAZOBACTAM [Concomitant]
     Active Substance: PIPERACILLIN SODIUM\TAZOBACTAM SODIUM
     Indication: PNEUMONIA
     Dosage: 4.5 MG, 3X/DAY (TID)
     Route: 042
     Dates: start: 20141224, end: 20141228
  12. KLACID [Concomitant]
     Active Substance: CLARITHROMYCIN
     Indication: PNEUMONIA
     Dosage: UNK
     Dates: start: 20141229
  13. ALUPENT [Concomitant]
     Active Substance: METAPROTERENOL SULFATE
     Indication: BRADYCARDIA
     Dosage: UNK
  14. VALPROIC ACID. [Concomitant]
     Active Substance: VALPROIC ACID
     Indication: STATUS EPILEPTICUS
     Dosage: 600 MG, 2X/DAY (BID)
     Route: 042
     Dates: start: 20141219, end: 20141221

REACTIONS (12)
  - Seizure [Unknown]
  - Hepatic encephalopathy [Unknown]
  - Aggression [Recovering/Resolving]
  - Hypokalaemia [Recovered/Resolved]
  - Off label use [Unknown]
  - Acute hepatic failure [Recovered/Resolved]
  - Bradycardia [Recovered/Resolved]
  - General physical health deterioration [Recovering/Resolving]
  - Agitation [Recovering/Resolving]
  - Cardiopulmonary failure [Unknown]
  - Transaminases increased [Recovered/Resolved]
  - Pneumonia [Recovering/Resolving]

NARRATIVE: CASE EVENT DATE: 201412
